FAERS Safety Report 8687622 (Version 2)
Quarter: 2013Q2

REPORT INFORMATION
  Report Type: Spontaneous
  Country: GB (occurrence: GB)
  Receive Date: 20120727
  Receipt Date: 20130627
  Transmission Date: 20140414
  Serious: Yes (Other)
  Sender: FDA-Public Use
  Company Number: GB-PFIZER INC-2012178452

PATIENT
  Sex: 0

DRUGS (1)
  1. AMLODIPINE BESILATE [Suspect]
     Indication: BLOOD PRESSURE
     Dosage: 5 MG, UNK
     Route: 065

REACTIONS (8)
  - Musculoskeletal stiffness [Unknown]
  - Visual acuity reduced [Unknown]
  - Palpitations [Unknown]
  - Pain [Unknown]
  - Insomnia [Unknown]
  - Headache [Unknown]
  - Memory impairment [Unknown]
  - Tinnitus [Unknown]
